FAERS Safety Report 10345629 (Version 7)
Quarter: 2016Q3

REPORT INFORMATION
  Report Type: Report from Study
  Country: US (occurrence: US)
  Receive Date: 20140728
  Receipt Date: 20160719
  Transmission Date: 20161109
  Serious: Yes (Other)
  Sender: FDA-Public Use
  Company Number: US-SA-2014SA022155

PATIENT
  Age: 57 Year
  Sex: Female

DRUGS (1)
  1. AUBAGIO [Suspect]
     Active Substance: TERIFLUNOMIDE
     Indication: MULTIPLE SCLEROSIS
     Route: 048
     Dates: start: 20140204

REACTIONS (8)
  - Motor dysfunction [Unknown]
  - Unevaluable event [Unknown]
  - Central nervous system lesion [Unknown]
  - Tremor [Not Recovered/Not Resolved]
  - Sensory loss [Unknown]
  - Headache [Recovered/Resolved]
  - Musculoskeletal stiffness [Unknown]
  - Dysgraphia [Unknown]

NARRATIVE: CASE EVENT DATE: 201402
